FAERS Safety Report 8615360-5 (Version None)
Quarter: 2012Q3

REPORT INFORMATION
  Report Type: 
  Country: None (occurrence: None)
  Receive Date: 20120823
  Receipt Date: 20120814
  Transmission Date: 20120928
  Serious: Yes (Hospitalization, Disabling, Other)
  Sender: FDA-Public Use
  Company Number: US-009507513-1206USA04694

PATIENT

DRUGS (3)
  1. VERAPAMIL [Concomitant]
     Indication: HYPERTENSION
     Dosage: 240 MG, UNK
  2. COZAAR [Concomitant]
     Indication: HYPERTENSION
     Dosage: 50-100
     Route: 048
  3. FOSAMAX [Suspect]
     Dosage: 70 MG, UNK
     Route: 048

REACTIONS (10)
  - FEMUR FRACTURE [None]
  - OPEN REDUCTION OF FRACTURE [None]
  - MASTECTOMY [None]
  - ADVERSE EVENT [None]
  - GASTROOESOPHAGEAL REFLUX DISEASE [None]
  - MALIGNANT BREAST LUMP REMOVAL [None]
  - BONE DENSITY DECREASED [None]
  - STRESS FRACTURE [None]
  - BREAST CANCER FEMALE [None]
  - OSTEOPOROSIS [None]
